FAERS Safety Report 16479522 (Version 4)
Quarter: 2022Q2

REPORT INFORMATION
  Report Type: Spontaneous
  Country: US (occurrence: US)
  Receive Date: 20190626
  Receipt Date: 20220425
  Transmission Date: 20220720
  Serious: No
  Sender: FDA-Public Use
  Company Number: US-BIOGEN-2019BI00755381

PATIENT
  Sex: Male

DRUGS (3)
  1. TECFIDERA [Suspect]
     Active Substance: DIMETHYL FUMARATE
     Indication: Multiple sclerosis
     Dosage: FOR 7 DAYS
     Route: 065
     Dates: start: 20190612
  2. TECFIDERA [Suspect]
     Active Substance: DIMETHYL FUMARATE
     Route: 048
     Dates: start: 20190627
  3. TECFIDERA [Suspect]
     Active Substance: DIMETHYL FUMARATE
     Route: 065
     Dates: start: 20190606, end: 20220412

REACTIONS (13)
  - Product dose omission issue [Unknown]
  - Diplopia [Recovered/Resolved]
  - Glassy eyes [Unknown]
  - Musculoskeletal stiffness [Unknown]
  - Chromaturia [Unknown]
  - Decreased appetite [Unknown]
  - Eye haemorrhage [Unknown]
  - Vision blurred [Unknown]
  - Fall [Recovered/Resolved]
  - Central nervous system lesion [Unknown]
  - Central nervous system lesion [Unknown]
  - Rash macular [Unknown]
  - Pruritus [Unknown]
